FAERS Safety Report 4581498-5 (Version None)
Quarter: 2005Q1

REPORT INFORMATION
  Report Type: 
  Country: None (occurrence: None)
  Receive Date: 20050214
  Receipt Date: 20041104
  Transmission Date: 20050727
  Serious: No
  Sender: FDA-Public Use
  Company Number: US-GLAXOSMITHKLINE-A0532714A

PATIENT
  Age: 56 Year
  Sex: Female

DRUGS (1)
  1. LAMICTAL [Suspect]
     Indication: ILL-DEFINED DISORDER
     Dosage: 100MG UNKNOWN
     Route: 048
     Dates: start: 20040701, end: 20040801

REACTIONS (3)
  - MENTAL IMPAIRMENT [None]
  - RASH [None]
  - RASH GENERALISED [None]
